FAERS Safety Report 12701223 (Version 1)
Quarter: 2016Q3

REPORT INFORMATION
  Report Type: Spontaneous
  Country: US (occurrence: None)
  Receive Date: 20160830
  Receipt Date: 20160830
  Transmission Date: 20161109
  Serious: Yes (Life-Threatening)
  Sender: FDA-Public Use
  Company Number: None

PATIENT
  Age: 49 Year
  Sex: Female
  Weight: 97.52 kg

DRUGS (10)
  1. CARAFATE [Suspect]
     Active Substance: SUCRALFATE
     Indication: THROAT IRRITATION
     Dosage: 1GM/10ML 10 ML AC QID + HS PO
     Route: 048
     Dates: start: 20160818, end: 20160818
  2. VITAMIN E [Concomitant]
     Active Substance: .ALPHA.-TOCOPHEROL
  3. VITAMIN D [Concomitant]
     Active Substance: CHOLECALCIFEROL
  4. ZESTORETIC [Concomitant]
     Active Substance: HYDROCHLOROTHIAZIDE\LISINOPRIL
  5. IBUPROFEN. [Concomitant]
     Active Substance: IBUPROFEN
  6. CARAFATE [Suspect]
     Active Substance: SUCRALFATE
     Indication: ODYNOPHAGIA
     Dosage: 1GM/10ML 10 ML AC QID + HS PO
     Route: 048
     Dates: start: 20160818, end: 20160818
  7. TRICOR [Concomitant]
     Active Substance: FENOFIBRATE
  8. MVI [Concomitant]
     Active Substance: VITAMINS
  9. SINUS MEDS [Concomitant]
  10. ZYPREXA [Concomitant]
     Active Substance: OLANZAPINE

REACTIONS (3)
  - Dysphagia [None]
  - Pharyngeal oedema [None]
  - Dyspnoea [None]

NARRATIVE: CASE EVENT DATE: 20160818
